FAERS Safety Report 4344090-3 (Version None)
Quarter: 2004Q2

REPORT INFORMATION
  Report Type: 
  Country: None (occurrence: None)
  Receive Date: 20040422
  Receipt Date: 20040414
  Transmission Date: 20050107
  Serious: Yes (Hospitalization)
  Sender: FDA-Public Use
  Company Number: IT-GLAXOSMITHKLINE-B0330576A

PATIENT
  Age: 43 Year
  Sex: Male

DRUGS (3)
  1. LAMIVUDINE [Suspect]
     Indication: HIV INFECTION
     Route: 065
  2. ZIDOVUDINE [Suspect]
     Indication: HIV INFECTION
     Route: 065
  3. INDINAVIR [Suspect]
     Indication: HIV INFECTION
     Route: 065

REACTIONS (7)
  - BLOOD LACTATE DEHYDROGENASE INCREASED [None]
  - DYSPHAGIA [None]
  - HYPERLACTACIDAEMIA [None]
  - MYALGIA [None]
  - NAUSEA [None]
  - PARAESTHESIA [None]
  - VOMITING [None]
